FAERS Safety Report 9863089 (Version 1)
Quarter: 2014Q1

REPORT INFORMATION
  Report Type: Spontaneous
  Country: US (occurrence: US)
  Receive Date: 20140203
  Receipt Date: 20140203
  Transmission Date: 20141002
  Serious: Yes (Other)
  Sender: FDA-Public Use
  Company Number: US-ABBVIE-14P-163-1195162-00

PATIENT
  Age: 66 Year
  Sex: Female

DRUGS (3)
  1. CREON [Suspect]
     Indication: PANCREATITIS
  2. ALTACE [Concomitant]
     Indication: HYPERTENSION
  3. ZOCOR [Concomitant]
     Indication: BLOOD CHOLESTEROL INCREASED

REACTIONS (2)
  - Eye haemorrhage [Recovering/Resolving]
  - Eye operation [Recovered/Resolved]
